FAERS Safety Report 9342404 (Version 1)
Quarter: 2013Q2

REPORT INFORMATION
  Report Type: Spontaneous
  Country: LV (occurrence: LV)
  Receive Date: 20130611
  Receipt Date: 20130611
  Transmission Date: 20140414
  Serious: Yes (Death)
  Sender: FDA-Public Use
  Company Number: LV-TEVA-410489ISR

PATIENT
  Age: 96 Year
  Sex: Male

DRUGS (2)
  1. DICLO CT 75 MG/2 ML [Suspect]
     Indication: OSTEOARTHRITIS
     Dosage: 75 MILLIGRAM DAILY;
     Route: 052
     Dates: start: 20130530
  2. LIDOCAINE-GRINDEKS 20 MG/ML [Suspect]
     Indication: OSTEOARTHRITIS
     Dosage: PERIARTICULAR BLOCKAGE
     Route: 052
     Dates: start: 20130530

REACTIONS (2)
  - Anaphylactic reaction [Fatal]
  - Cerebrovascular accident [Fatal]
